FAERS Safety Report 10415046 (Version 1)
Quarter: 2014Q2

REPORT INFORMATION
  Report Type: Spontaneous
  Country: US (occurrence: None)
  Receive Date: 20140604
  Receipt Date: 20140604
  Transmission Date: 20141212
  Serious: No
  Sender: FDA-Public Use
  Company Number: 163-POMAL-14030950

PATIENT
  Age: 83 Year
  Sex: Male
  Weight: 64.9 kg

DRUGS (16)
  1. POMALYST (POMALIDOMIDE) (2 MILLIGRAM, CAPSULES) [Suspect]
     Indication: PLASMA CELL MYELOMA
     Dosage: 1.5 MG, 21 IN 28 D, PO
     Route: 048
     Dates: start: 20140102, end: 20140306
  2. SULFA (SULFUR) [Concomitant]
  3. NIFEDIPINE [Concomitant]
  4. TOPROL XL (METOPROLOL SUCCINATE) [Concomitant]
  5. IRON [Concomitant]
  6. MULTIVITAMINS [Concomitant]
  7. FERROUS FUMARATE [Concomitant]
  8. VITAMIN B6 (PYRIDOXINE HYDROCHLORIDE) [Concomitant]
  9. VITAMIN B12 (CYANOCOBALAMIN) [Concomitant]
  10. FOLIC ACID [Concomitant]
  11. CELEXA (CITALOPRAM HYDROBROMIDE) [Concomitant]
  12. NEXIUM (ESOMEPRAZOLE) [Concomitant]
  13. LIPITOR (ATORVASTATIN) [Concomitant]
  14. AGGRENOX (ASASANTIN) [Concomitant]
  15. NEURONTIN (GABAPENTIN) [Concomitant]
  16. LASIX (FUROSEMIDE) [Concomitant]

REACTIONS (1)
  - Adverse drug reaction [None]
